FAERS Safety Report 4505954-0 (Version None)
Quarter: 2004Q4

REPORT INFORMATION
  Report Type: 
  Country: None (occurrence: None)
  Receive Date: 20041119
  Receipt Date: 20041104
  Transmission Date: 20050328
  Serious: Yes (Hospitalization, Other)
  Sender: FDA-Public Use
  Company Number: PHBS2004JP14920

PATIENT
  Age: 10 Year
  Sex: Female
  Weight: 33 kg

DRUGS (4)
  1. CYCLOSPORINE [Suspect]
     Indication: JUVENILE ARTHRITIS
     Route: 048
     Dates: start: 20010101, end: 20030101
  2. SANDIMMUNE [Suspect]
     Indication: JUVENILE ARTHRITIS
     Dates: start: 20030101
  3. CONTRAST MEDIA [Suspect]
  4. STEROIDS NOS [Concomitant]
     Dosage: PULSE THERAPY

REACTIONS (16)
  - BACTERIAL TOXAEMIA [None]
  - BLOOD CALCIUM INCREASED [None]
  - DISEASE PROGRESSION [None]
  - DISSEMINATED INTRAVASCULAR COAGULATION [None]
  - HAEMODIALYSIS [None]
  - HEART RATE INCREASED [None]
  - HISTIOCYTOSIS HAEMATOPHAGIC [None]
  - HYPOTENSION [None]
  - MUCOSAL HAEMORRHAGE [None]
  - PANCYTOPENIA [None]
  - PYREXIA [None]
  - RENAL FAILURE ACUTE [None]
  - RENAL IMPAIRMENT [None]
  - RENAL TUBULAR DISORDER [None]
  - SEPSIS [None]
  - TUBULOINTERSTITIAL NEPHRITIS [None]
